FAERS Safety Report 5487756-4 (Version None)
Quarter: 2007Q3

REPORT INFORMATION
  Report Type: 
  Country: None (occurrence: None)
  Receive Date: 20070927
  Receipt Date: 20070607
  Transmission Date: 20080115
  Serious: Yes (Hospitalization)
  Sender: FDA-Public Use
  Company Number: A03200703630

PATIENT
  Age: 52 Year
  Sex: Female

DRUGS (5)
  1. AMBIEN CR [Suspect]
     Indication: INSOMNIA
     Dosage: 12.5 MG ONCE - ORAL
     Route: 048
     Dates: start: 20070516, end: 20070516
  2. COUMADIN [Suspect]
  3. SPIRONOLACTONE [Concomitant]
  4. DIGOXIN [Concomitant]
  5. CANDESARTAN CILEXETIL [Concomitant]

REACTIONS (7)
  - AMNESIA [None]
  - EPISTAXIS [None]
  - FACE INJURY [None]
  - FALL [None]
  - SLEEP TALKING [None]
  - SOMNAMBULISM [None]
  - SOMNOLENCE [None]
